FAERS Safety Report 9440958 (Version 2)
Quarter: 2013Q3

REPORT INFORMATION
  Report Type: Spontaneous
  Country: CZ (occurrence: CZ)
  Receive Date: 20130805
  Receipt Date: 20130806
  Transmission Date: 20140515
  Serious: Yes (Hospitalization, Other)
  Sender: FDA-Public Use
  Company Number: CZ-BAYER-2013-089962

PATIENT
  Age: 29 Year
  Sex: Female

DRUGS (3)
  1. MIRENA [Suspect]
     Indication: CONTRACEPTION
     Dosage: 20 MCG/24HR, QD
     Route: 015
     Dates: start: 20120919, end: 20130723
  2. MINISISTON [Concomitant]
     Dosage: UNK
     Route: 048
     Dates: start: 20130417, end: 20130517
  3. SUMAMED [Concomitant]
     Indication: METRORRHAGIA
     Dosage: UNK
     Route: 048
     Dates: start: 201302, end: 201302

REACTIONS (7)
  - Anxiety [Recovered/Resolved]
  - Chest discomfort [None]
  - Back pain [Recovered/Resolved]
  - Depression [None]
  - Metrorrhagia [Recovered/Resolved]
  - Coital bleeding [Recovered/Resolved]
  - Genital haemorrhage [Recovered/Resolved]
